FAERS Safety Report 15760022 (Version 1)
Quarter: 2018Q4

REPORT INFORMATION
  Report Type: Spontaneous
  Country: US (occurrence: US)
  Receive Date: 20181218
  Receipt Date: 20181218
  Transmission Date: 20190205
  Serious: No
  Sender: FDA-Public Use
  Company Number: None

PATIENT

DRUGS (2)
  1. METHOCARBAMOL 750MG TABLETS [Suspect]
     Active Substance: METHOCARBAMOL
  2. NAPROXEN SODIUM 550MG TABLETS [Suspect]
     Active Substance: NAPROXEN SODIUM

REACTIONS (3)
  - Product dispensing error [None]
  - Product appearance confusion [None]
  - Product label on wrong product [None]

NARRATIVE: CASE EVENT DATE: 2018
